FAERS Safety Report 5870249-X (Version None)
Quarter: 2008Q3

REPORT INFORMATION
  Report Type: 
  Country: None (occurrence: None)
  Receive Date: 20080904
  Receipt Date: 20070802
  Transmission Date: 20090109
  Serious: No
  Sender: FDA-Public Use
  Company Number: US-BRISTOL-MYERS SQUIBB COMPANY-13865936

PATIENT
  Age: 52 Year
  Sex: Female
  Weight: 66 kg

DRUGS (9)
  1. DEFINITY [Suspect]
     Indication: ECHOCARDIOGRAM
     Route: 042
     Dates: start: 20070802, end: 20070802
  2. ZOLOFT [Concomitant]
  3. PREVACID [Concomitant]
  4. VALTREX [Concomitant]
  5. COREG [Concomitant]
  6. IMITREX [Concomitant]
  7. CALCIUM [Concomitant]
  8. ASACOL [Concomitant]
  9. FOSAMAX PLUS D [Concomitant]

REACTIONS (1)
  - BACK PAIN [None]
